FAERS Safety Report 5668094-3 (Version None)
Quarter: 2008Q1

REPORT INFORMATION
  Report Type: 
  Country: None (occurrence: None)
  Receive Date: 20080313
  Receipt Date: 20080304
  Transmission Date: 20080703
  Serious: Yes (Other)
  Sender: FDA-Public Use
  Company Number: 2008005706

PATIENT
  Sex: Male

DRUGS (1)
  1. COOL MINT LISTERINE POCKETMIST (NO ACTIVE INGREDIENT) [Suspect]
     Indication: PHARYNGOLARYNGEAL PAIN
     Dosage: TOOK A LOT OF THE PRODUCT, ORAL
     Route: 048
     Dates: start: 20080304

REACTIONS (2)
  - BLISTER [None]
  - PHARYNGOLARYNGEAL PAIN [None]
